FAERS Safety Report 22087904 (Version 1)
Quarter: 2023Q1

REPORT INFORMATION
  Report Type: Spontaneous
  Country: US (occurrence: US)
  Receive Date: 20230313
  Receipt Date: 20230313
  Transmission Date: 20230417
  Serious: No
  Sender: FDA-Public Use
  Company Number: US-GSKCCFUS-Case-01646530_AE-92931

PATIENT
  Sex: Female

DRUGS (1)
  1. JEMPERLI [Suspect]
     Active Substance: DOSTARLIMAB-GXLY
     Indication: Colorectal cancer
     Dosage: 500 MG, Z (EVERY 3 WEEKS)
     Route: 042
     Dates: start: 20220901

REACTIONS (1)
  - Inappropriate schedule of product administration [Unknown]
